FAERS Safety Report 9383380 (Version 1)
Quarter: 2013Q3

REPORT INFORMATION
  Report Type: Spontaneous
  Country: US (occurrence: US)
  Receive Date: 20130704
  Receipt Date: 20130704
  Transmission Date: 20140515
  Serious: No
  Sender: FDA-Public Use
  Company Number: US-009507513-1307USA000839

PATIENT
  Age: 35 Year
  Sex: Male

DRUGS (2)
  1. SAPHRIS [Suspect]
     Indication: BIPOLAR DISORDER
     Dosage: 10 MG, QD
     Route: 060
     Dates: start: 201207
  2. KLONOPIN [Concomitant]

REACTIONS (2)
  - Weight increased [Recovering/Resolving]
  - Inappropriate schedule of drug administration [Unknown]
